FAERS Safety Report 6354514-8 (Version None)
Quarter: 2009Q3

REPORT INFORMATION
  Report Type: 
  Country: None (occurrence: None)
  Receive Date: 20090914
  Receipt Date: 20090909
  Transmission Date: 20100115
  Serious: Yes (Hospitalization, Other)
  Sender: FDA-Public Use
  Company Number: US-BRISTOL-MYERS SQUIBB COMPANY-14719413

PATIENT
  Age: 53 Year
  Sex: Female

DRUGS (2)
  1. COUMADIN [Suspect]
     Indication: DEEP VEIN THROMBOSIS
     Dosage: INITIATED ON 1975 TOOK FOR 6 MNTS. 1 DF- 5 AND 6MG TABS EVERY OTHER DAY RECENT DOSE SINCE 20SEP07
     Route: 048
     Dates: start: 19830101
  2. HEPARIN SODIUM [Suspect]

REACTIONS (3)
  - CHEST PAIN [None]
  - DEEP VEIN THROMBOSIS [None]
  - PULMONARY EMBOLISM [None]
